FAERS Safety Report 5507308-7 (Version None)
Quarter: 2007Q4

REPORT INFORMATION
  Report Type: 
  Country: None (occurrence: None)
  Receive Date: 20071106
  Receipt Date: 20071026
  Transmission Date: 20080405
  Serious: Yes (Hospitalization)
  Sender: FDA-Public Use
  Company Number: FR-AVENTIS-200717565GDDC

PATIENT
  Age: 63 Year
  Sex: Male
  Weight: 77 kg

DRUGS (6)
  1. AFLIBERCEPT [Suspect]
     Indication: COLON CANCER
     Route: 042
     Dates: start: 20070612, end: 20070724
  2. TAXOTERE [Suspect]
     Indication: COLON CANCER
     Route: 042
     Dates: start: 20070612, end: 20070724
  3. CISPLATIN [Suspect]
     Indication: COLON CANCER
     Route: 042
     Dates: start: 20070724, end: 20070724
  4. AMLOR [Concomitant]
     Indication: HYPERTENSION
     Route: 048
     Dates: start: 20070601
  5. ZYLORIC [Concomitant]
     Route: 048
  6. NOVONORM [Concomitant]
     Route: 048

REACTIONS (6)
  - DIPLOPIA [None]
  - DYSARTHRIA [None]
  - NAUSEA [None]
  - PHOTOPHOBIA [None]
  - TRANSIENT ISCHAEMIC ATTACK [None]
  - VOMITING [None]
